FAERS Safety Report 5242032-X (Version None)
Quarter: 2007Q1

REPORT INFORMATION
  Report Type: 
  Country: None (occurrence: None)
  Receive Date: 20070212
  Receipt Date: 20070207
  Transmission Date: 20070707
  Serious: Yes (Other)
  Sender: FDA-Public Use
  Company Number: 2007SP001194

PATIENT
  Age: 47 Year
  Sex: Female
  Weight: 94.8018 kg

DRUGS (5)
  1. PEG-INTRON [Suspect]
     Indication: HEPATITIS C
     Dosage: 150 MCG; QW; SC
     Route: 058
     Dates: start: 20061204, end: 20061225
  2. RIBAVIRIN [Suspect]
     Indication: HEPATITIS C
     Dosage: 400 MG; BID; PO
     Route: 048
     Dates: start: 20061204, end: 20061221
  3. GLUCOTROL [Concomitant]
  4. GLUCOPHAGE [Concomitant]
  5. BACTRIM [Concomitant]

REACTIONS (7)
  - ANOREXIA [None]
  - DEHYDRATION [None]
  - DEPRESSION [None]
  - FATIGUE [None]
  - NAUSEA [None]
  - VOMITING [None]
  - WEIGHT DECREASED [None]
